FAERS Safety Report 9855457 (Version 2)
Quarter: 2014Q2

REPORT INFORMATION
  Report Type: Spontaneous
  Country: IT (occurrence: IT)
  Receive Date: 20140130
  Receipt Date: 20140407
  Transmission Date: 20141212
  Serious: Yes (Hospitalization)
  Sender: FDA-Public Use
  Company Number: IT-BAYER-2014-015557

PATIENT
  Age: 77 Year
  Sex: Male
  Weight: 70 kg

DRUGS (8)
  1. CARDIOASPIRIN [Suspect]
     Dosage: DAILY DOSE 1 DF
     Route: 048
     Dates: start: 20130301
  2. PRADAXA [Suspect]
     Indication: ATRIAL FIBRILLATION
     Dosage: DAILY DOSE 220 MG
     Route: 048
     Dates: start: 20131015, end: 20131101
  3. PLAVIX [Interacting]
     Dosage: DAILY DOSE 1 DF
     Route: 048
     Dates: start: 20130301
  4. CARVEDILOL ACTAVIS [Concomitant]
     Dosage: DAILY DOSE 1 DF
     Dates: start: 20130301, end: 20131110
  5. LOSARTAN POTASSIUM [Concomitant]
     Dosage: UNK
  6. MONOKET [Concomitant]
     Dosage: UNK
  7. RABEPRAZOLE SODIUM [Concomitant]
     Dosage: UNK
  8. SIMVASTATIN [Concomitant]
     Dosage: UNK

REACTIONS (4)
  - Anaemia [Recovered/Resolved]
  - Haematochezia [Recovered/Resolved]
  - Dyspnoea exertional [Recovered/Resolved]
  - Drug interaction [Recovered/Resolved]
